FAERS Safety Report 12436291 (Version 1)
Quarter: 2016Q2

REPORT INFORMATION
  Report Type: Spontaneous
  Country: US (occurrence: US)
  Receive Date: 20160605
  Receipt Date: 20160605
  Transmission Date: 20160815
  Serious: No
  Sender: FDA-Public Use
  Company Number: US-ASTRAZENECA-2016SE53522

PATIENT
  Sex: Female
  Weight: 99.8 kg

DRUGS (3)
  1. SEROQUEL [Suspect]
     Active Substance: QUETIAPINE FUMARATE
     Indication: ANXIETY DISORDER
     Route: 048
     Dates: start: 201512, end: 20160509
  2. SEROQUEL [Suspect]
     Active Substance: QUETIAPINE FUMARATE
     Indication: DEPRESSION
     Route: 048
     Dates: start: 201512, end: 20160509
  3. SEROQUEL [Suspect]
     Active Substance: QUETIAPINE FUMARATE
     Indication: POST-TRAUMATIC STRESS DISORDER
     Route: 048
     Dates: start: 201512, end: 20160509

REACTIONS (8)
  - Diplopia [Unknown]
  - Motor dysfunction [Unknown]
  - Product use issue [Unknown]
  - Confusional state [Unknown]
  - Irritability [Unknown]
  - Vomiting [Unknown]
  - Off label use [Unknown]
  - Nausea [Unknown]
